FAERS Safety Report 6050906-5 (Version None)
Quarter: 2009Q1

REPORT INFORMATION
  Report Type: 
  Country: None (occurrence: None)
  Receive Date: 20090121
  Receipt Date: 20090121
  Transmission Date: 20090719
  Serious: Yes (Death)
  Sender: FDA-Public Use
  Company Number: None

PATIENT
  Sex: Male

DRUGS (2)
  1. CELEBREX [Suspect]
     Indication: OSTEOPENIA
     Dosage: 200 MG ONE TIME PER DAY PO
     Route: 048
     Dates: start: 20071011, end: 20071206
  2. CELEBREX [Suspect]
     Indication: PAIN
     Dosage: 200 MG ONE TIME PER DAY PO
     Route: 048
     Dates: start: 20071011, end: 20071206

REACTIONS (1)
  - NO ADVERSE EVENT [None]
